FAERS Safety Report 14604725 (Version 6)
Quarter: 2018Q2

REPORT INFORMATION
  Report Type: Report from Study
  Country: US (occurrence: US)
  Receive Date: 20180306
  Receipt Date: 20180613
  Transmission Date: 20180711
  Serious: Yes (Other)
  Sender: FDA-Public Use
  Company Number: US-PFIZER INC-2018022692

PATIENT
  Age: 77 Year
  Sex: Female

DRUGS (2)
  1. IBRANCE [Suspect]
     Active Substance: PALBOCICLIB
     Indication: BREAST CANCER
     Dosage: 125 MG, DAILY
     Route: 048
     Dates: start: 20180115, end: 20180204
  2. IBRANCE [Suspect]
     Active Substance: PALBOCICLIB
     Dosage: 125 MG, DAILY
     Route: 048
     Dates: start: 20180220

REACTIONS (10)
  - Neuropathy peripheral [Unknown]
  - Anaemia [Unknown]
  - Leukopenia [Unknown]
  - Abdominal discomfort [Unknown]
  - Bone marrow failure [Unknown]
  - Pain in extremity [Recovered/Resolved]
  - Thrombosis [Unknown]
  - Drug dose omission [Unknown]
  - Fatigue [Unknown]
  - Headache [Unknown]

NARRATIVE: CASE EVENT DATE: 2018
